FAERS Safety Report 9799510 (Version 3)
Quarter: 2014Q2

REPORT INFORMATION
  Report Type: Spontaneous
  Country: US (occurrence: US)
  Receive Date: 20140106
  Receipt Date: 20140521
  Transmission Date: 20141212
  Serious: No
  Sender: FDA-Public Use
  Company Number: US-PFIZER INC-2014000001

PATIENT
  Age: 53 Year
  Sex: Female
  Weight: 112 kg

DRUGS (9)
  1. LYRICA [Suspect]
     Indication: DIABETIC NEUROPATHY
     Dosage: 50 MG, 2X/DAY
  2. LYRICA [Suspect]
     Dosage: 50 MG, 3X/DAY
  3. LYRICA [Suspect]
     Dosage: 75 MG, 3X/DAY
  4. LYRICA [Suspect]
     Dosage: 75 MG, 4X/DAY
     Dates: end: 201312
  5. METFORMIN [Concomitant]
     Indication: TYPE 2 DIABETES MELLITUS
     Dosage: 1000 MG, 2X/DAY
     Route: 048
  6. DICLOFENAC [Concomitant]
     Indication: ARTHRITIS
     Dosage: 75 MG, 2X/DAY
  7. RANITIDINE [Concomitant]
     Indication: GASTROOESOPHAGEAL REFLUX DISEASE
     Dosage: 150 MG, 2X/DAY
  8. LISINOPRIL W/HYDROCHLOROTHIAZIDE [Concomitant]
     Indication: HYPERTENSION
     Dosage: 20(LISINOPRIL)/25 (HYDROCHLOROTHIAZIDE)MG, 1X/DAY
  9. CYCLOBENZAPRINE [Concomitant]
     Indication: MUSCLE SPASMS
     Dosage: 10 MG, AS NEEDED

REACTIONS (4)
  - Drug ineffective [Unknown]
  - Pain in extremity [Unknown]
  - Pain [Unknown]
  - Dysstasia [Unknown]
